FAERS Safety Report 19416405 (Version 2)
Quarter: 2021Q2

REPORT INFORMATION
  Report Type: Spontaneous
  Country: FR (occurrence: FR)
  Receive Date: 20210614
  Receipt Date: 20210623
  Transmission Date: 20210717
  Serious: Yes (Disabling)
  Sender: FDA-Public Use
  Company Number: FR-PFIZER INC-2021637477

PATIENT
  Age: 68 Year
  Sex: Female

DRUGS (1)
  1. ZOLEDRONIC ACID [Suspect]
     Active Substance: ZOLEDRONIC ACID
     Dosage: UNK, 5 MG/ML
     Route: 065
     Dates: start: 20210517

REACTIONS (2)
  - Back pain [Unknown]
  - Gait inability [Unknown]

NARRATIVE: CASE EVENT DATE: 20210518
